FAERS Safety Report 20772483 (Version 2)
Quarter: 2022Q2

REPORT INFORMATION
  Report Type: Report from Study
  Country: DE (occurrence: DE)
  Receive Date: 20220502
  Receipt Date: 20220505
  Transmission Date: 20220720
  Serious: Yes (Other)
  Sender: FDA-Public Use
  Company Number: DE-HBP-2022DE026170

PATIENT
  Age: 63 Year
  Sex: Female
  Weight: 47 kg

DRUGS (9)
  1. AKYNZEO (NETUPITANT\PALONOSETRON) [Suspect]
     Active Substance: NETUPITANT\PALONOSETRON
     Indication: Prophylaxis of nausea and vomiting
     Dosage: 1 DOSAGE FORM, QD
     Dates: start: 20220217, end: 20220217
  2. AKYNZEO (NETUPITANT\PALONOSETRON) [Suspect]
     Active Substance: NETUPITANT\PALONOSETRON
     Dosage: 1 DOSAGE FORM, QD
     Dates: start: 20220310, end: 20220310
  3. AKYNZEO (NETUPITANT\PALONOSETRON) [Suspect]
     Active Substance: NETUPITANT\PALONOSETRON
     Dosage: 1 DOSAGE FORM, QD
     Dates: start: 20220331, end: 20220331
  4. CARBOPLATIN [Concomitant]
     Active Substance: CARBOPLATIN
     Indication: Chemotherapy
     Dosage: UNK UNK, UNKNOWN
     Route: 065
     Dates: start: 20220217, end: 20220217
  5. CARBOPLATIN [Concomitant]
     Active Substance: CARBOPLATIN
     Dosage: UNK UNK, UNKNOWN
     Route: 065
     Dates: start: 20220310, end: 20220310
  6. CARBOPLATIN [Concomitant]
     Active Substance: CARBOPLATIN
     Dosage: UNK UNK, UNKNOWN
     Route: 065
     Dates: start: 20220331, end: 20220331
  7. PACLITAXEL [Concomitant]
     Active Substance: PACLITAXEL
     Indication: Chemotherapy
     Dosage: 175 MILLIGRAM PER CUBIC METRE, UNKNOWN
     Route: 065
     Dates: start: 20220217, end: 20220217
  8. PACLITAXEL [Concomitant]
     Active Substance: PACLITAXEL
     Dosage: 175 MILLIGRAM PER CUBIC METRE, UNKNOWN
     Route: 065
     Dates: start: 20220310, end: 20220310
  9. PACLITAXEL [Concomitant]
     Active Substance: PACLITAXEL
     Dosage: 175 MILLIGRAM PER CUBIC METRE, UNKNOWN
     Route: 065
     Dates: start: 20220331, end: 20220331

REACTIONS (5)
  - Thrombocytopenia [Recovered/Resolved]
  - Neutropenia [Unknown]
  - Constipation [Recovered/Resolved]
  - Fatigue [Recovered/Resolved]
  - Insomnia [Recovered/Resolved]

NARRATIVE: CASE EVENT DATE: 20220330
